FAERS Safety Report 11140084 (Version 1)
Quarter: 2015Q2

REPORT INFORMATION
  Report Type: Spontaneous
  Country: US (occurrence: None)
  Receive Date: 20150526
  Receipt Date: 20150526
  Transmission Date: 20150821
  Serious: Yes (Other)
  Sender: FDA-Public Use
  Company Number: None

PATIENT
  Age: 59 Year
  Sex: Female

DRUGS (1)
  1. IBRANCE [Suspect]
     Active Substance: PALBOCICLIB
     Indication: BREAST CANCER
     Route: 048
     Dates: start: 20150407

REACTIONS (5)
  - Fatigue [None]
  - Alopecia [None]
  - Peripheral swelling [None]
  - Joint swelling [None]
  - Neuropathy peripheral [None]

NARRATIVE: CASE EVENT DATE: 20150522
